FAERS Safety Report 22964878 (Version 6)
Quarter: 2024Q3

REPORT INFORMATION
  Report Type: Spontaneous
  Country: US (occurrence: US)
  Receive Date: 20230921
  Receipt Date: 20240913
  Transmission Date: 20241017
  Serious: No
  Sender: PFIZER
  Company Number: US-PFIZER INC-202300290364

PATIENT
  Age: 5 Year
  Sex: Male
  Weight: 20.7 kg

DRUGS (3)
  1. GENOTROPIN [Suspect]
     Active Substance: SOMATROPIN
     Indication: Small for dates baby
     Dosage: ALTERNATE 1MG AND 0.8 MG EVERY OTHER DAY FOR DAILY AVERAGE OF 0.9 MG
     Route: 058
     Dates: start: 20230713
  2. GENOTROPIN [Suspect]
     Active Substance: SOMATROPIN
     Dosage: ALTERNATE 1MG AND 0.8 MG EVERY OTHER DAY FOR DAILY AVERAGE OF 0.9 MG
     Route: 058
     Dates: start: 20230713
  3. GENOTROPIN [Suspect]
     Active Substance: SOMATROPIN
     Dosage: DAILY DOSE 1 MG/DAY 7 DAYS/WK

REACTIONS (4)
  - Device mechanical issue [Unknown]
  - Device leakage [Unknown]
  - Device defective [Unknown]
  - Product dose omission issue [Unknown]
